FAERS Safety Report 7860216-9 (Version None)
Quarter: 2011Q4

REPORT INFORMATION
  Report Type: 
  Country: None (occurrence: None)
  Receive Date: 20111027
  Receipt Date: 20111017
  Transmission Date: 20120403
  Serious: Yes (Hospitalization)
  Sender: FDA-Public Use
  Company Number: US-BAYER-201033784NA

PATIENT
  Age: 21 Year
  Sex: Female
  Weight: 74.376 kg

DRUGS (11)
  1. YAZ [Suspect]
     Indication: PREMENSTRUAL SYNDROME
     Dosage: UNK
     Route: 048
     Dates: start: 20000101, end: 20030101
  2. SINGULAIR [Concomitant]
     Indication: ASTHMA
     Dosage: UNK
     Dates: start: 19900101, end: 20100101
  3. ZYRTEC [Concomitant]
     Indication: ASTHMA
     Dosage: UNK
     Dates: start: 19900101, end: 20100101
  4. ALBUTEROL [Concomitant]
     Indication: ASTHMA
     Dosage: UNK
     Dates: start: 19900101, end: 20100101
  5. IBUPROFEN [Concomitant]
     Dosage: UNK
     Dates: start: 20000101, end: 20080101
  6. ALBUTEROL SULFATE [Concomitant]
     Indication: ASTHMA
     Dosage: UNK
     Dates: start: 19900101, end: 20100101
  7. YASMIN [Suspect]
     Route: 048
  8. YAZ [Suspect]
  9. ADVAIR DISKUS 100/50 [Concomitant]
     Indication: ASTHMA
     Dosage: UNK
     Dates: start: 19900101, end: 20100101
  10. ANTIBIOTICS [Concomitant]
     Dosage: UNK
     Dates: start: 20030101
  11. DROSPIRENONE AND ETHINYL ESTRADIOL [Suspect]
     Route: 048

REACTIONS (4)
  - CHOLECYSTITIS CHRONIC [None]
  - PAIN [None]
  - CHOLELITHIASIS [None]
  - INJURY [None]
